FAERS Safety Report 9355891 (Version 1)
Quarter: 2013Q2

REPORT INFORMATION
  Report Type: Spontaneous
  Country: AT (occurrence: AT)
  Receive Date: 20130619
  Receipt Date: 20130619
  Transmission Date: 20140414
  Serious: Yes (Death, Hospitalization)
  Sender: FDA-Public Use
  Company Number: AT-MPIJNJ-2013-01879

PATIENT
  Sex: 0

DRUGS (3)
  1. VELCADE [Suspect]
     Indication: PLASMA CELL MYELOMA
     Dosage: UNK
     Route: 065
  2. DOXORUBICIN [Concomitant]
     Dosage: UNK
  3. DEXAMETHASON                       /00016001/ [Concomitant]
     Dosage: UNK

REACTIONS (2)
  - Lung infiltration [Unknown]
  - Condition aggravated [Fatal]
